FAERS Safety Report 8602290-8 (Version None)
Quarter: 2012Q3

REPORT INFORMATION
  Report Type: 
  Country: None (occurrence: None)
  Receive Date: 20120817
  Receipt Date: 20120807
  Transmission Date: 20120928
  Serious: Yes (Death)
  Sender: FDA-Public Use
  Company Number: US-UCBSA-063582

PATIENT
  Age: 56 Year
  Sex: Female

DRUGS (8)
  1. NEUPRO [Suspect]
     Indication: PARKINSON'S DISEASE
     Dosage: 2 MG PATCH FOR 7 DAYS AND GOING UPTO 4 MG
     Dates: start: 20120725
  2. VENLAFAXINE [Concomitant]
     Indication: ANXIETY
     Dosage: EXTENDED RELEASE
     Route: 048
  3. TROSPIUM CHLORIDE [Concomitant]
     Indication: URINARY TRACT DISORDER
     Dosage: BEFORE MEALS
     Dates: start: 20120801
  4. SOLIFENACIN SUCCINATE [Concomitant]
     Indication: URINARY TRACT DISORDER
     Dosage: ONE AT 7 AM AND ONE AT 10 PM
  5. CARBIDOPA AND LEVODOPA [Concomitant]
     Dosage: 50/200 MG,CONTINUOUS RELEASE, ONE AT 1 AM, 10 AM,1 PM,4 PM, 7 PM AND 10 PM
  6. CARBIDOPA AND LEVODOPA [Concomitant]
     Dosage: 25/100 MG, ONE AT 7 AM AND 1 PM AND ONE AS NEEDED
  7. VENLAFAXINE [Concomitant]
     Indication: DEPRESSION
     Dosage: EXTENDED RELEASE
     Route: 048
  8. RASAGILINE [Concomitant]
     Route: 048

REACTIONS (1)
  - DEATH [None]
